FAERS Safety Report 8599224-1 (Version None)
Quarter: 2012Q3

REPORT INFORMATION
  Report Type: 
  Country: None (occurrence: None)
  Receive Date: 20120816
  Receipt Date: 20111111
  Transmission Date: 20120928
  Serious: No
  Sender: FDA-Public Use
  Company Number: US-AMGEN-USASP2011059681

PATIENT
  Age: 82 Year
  Sex: Female

DRUGS (2)
  1. LASIX [Concomitant]
     Dosage: 40 MG, QD
  2. NEUPOGEN [Suspect]
     Indication: NEUTROPENIA
     Dosage: UNK UNK, Q4WK
     Dates: start: 20111001

REACTIONS (3)
  - JOINT SWELLING [None]
  - SKIN EXFOLIATION [None]
  - ARTHRALGIA [None]
